FAERS Safety Report 25042216 (Version 1)
Quarter: 2025Q1

REPORT INFORMATION
  Report Type: Spontaneous
  Country: FR (occurrence: FR)
  Receive Date: 20250305
  Receipt Date: 20250305
  Transmission Date: 20250409
  Serious: Yes (Hospitalization)
  Sender: REGENERON
  Company Number: None

PATIENT
  Age: 71 Year
  Sex: Male

DRUGS (1)
  1. LIBTAYO [Suspect]
     Active Substance: CEMIPLIMAB-RWLC
     Indication: Lung neoplasm malignant
     Route: 042
     Dates: start: 20231229

REACTIONS (1)
  - Troponin increased [Recovering/Resolving]

NARRATIVE: CASE EVENT DATE: 20250101
